FAERS Safety Report 13420306 (Version 3)
Quarter: 2017Q4

REPORT INFORMATION
  Report Type: Report from Study
  Country: US (occurrence: US)
  Receive Date: 20170407
  Receipt Date: 20171201
  Transmission Date: 20180320
  Serious: Yes (Hospitalization)
  Sender: FDA-Public Use
  Company Number: PHHY2017US051224

PATIENT
  Age: 12 Year
  Sex: Male
  Weight: 37.2 kg

DRUGS (4)
  1. TACROLIMUS. [Suspect]
     Active Substance: TACROLIMUS
     Dosage: 0.3 MG, BID
     Route: 048
     Dates: start: 20170217
  2. INC424A [Suspect]
     Active Substance: RUXOLITINIB
     Indication: ACUTE GRAFT VERSUS HOST DISEASE
     Dosage: 5 MG, BID
     Route: 048
     Dates: start: 20161130
  3. HYDROCORTISONE. [Suspect]
     Active Substance: HYDROCORTISONE
     Indication: ADRENAL SUPPRESSION
     Dosage: 100 MG, ONCE/SINGLE
     Route: 042
     Dates: start: 20170213, end: 20170213
  4. TACROLIMUS. [Suspect]
     Active Substance: TACROLIMUS
     Indication: GRAFT VERSUS HOST DISEASE
     Dosage: 0.4 MG, BID
     Route: 048
     Dates: start: 20150210, end: 20170216

REACTIONS (3)
  - Hypovolaemia [Recovered/Resolved]
  - Diarrhoea [Recovered/Resolved]
  - Gastroenteritis norovirus [Recovered/Resolved]

NARRATIVE: CASE EVENT DATE: 20170216
